FAERS Safety Report 23450276 (Version 1)
Quarter: 2024Q1

REPORT INFORMATION
  Report Type: Spontaneous
  Country: NL (occurrence: NL)
  Receive Date: 20240129
  Receipt Date: 20240129
  Transmission Date: 20240410
  Serious: Yes (Other)
  Sender: FDA-Public Use
  Company Number: NL-LRB-00934169

PATIENT
  Age: 15 Year
  Sex: Female
  Weight: 62 kg

DRUGS (13)
  1. PREDNISOLONE [Suspect]
     Active Substance: PREDNISOLONE
     Indication: Product used for unknown indication
     Dosage: 1 DOSAGE FORM, PRN
     Route: 065
     Dates: start: 2019
  2. TRIAMCINOLONE ACETONIDE [Suspect]
     Active Substance: TRIAMCINOLONE ACETONIDE
     Indication: Eczema
     Dosage: UNK
     Route: 065
     Dates: start: 2017, end: 20210918
  3. FLUTICASONE [Suspect]
     Active Substance: FLUTICASONE
     Indication: Sinusitis
     Dosage: UNK, ONCE A DAY
     Route: 065
     Dates: start: 2020
  4. BUDESONIDE [Suspect]
     Active Substance: BUDESONIDE
     Indication: Sinusitis
     Dosage: 1 DOSAGE FORM 1-2 TIMES A DAY
     Route: 065
     Dates: end: 2018
  5. BUDESONIDE [Suspect]
     Active Substance: BUDESONIDE
     Indication: Asthma
     Dosage: UNK 1-2 INHALES, TWO TIMES A DAY
     Route: 065
     Dates: end: 2018
  6. DEXAMETHASONE\TOBRAMYCIN [Suspect]
     Active Substance: DEXAMETHASONE\TOBRAMYCIN
     Indication: Product used for unknown indication
     Dosage: UNK
     Route: 065
     Dates: end: 2018
  7. ALVESCO [Suspect]
     Active Substance: CICLESONIDE
     Indication: Asthma
     Dosage: 1 DOSAGE FORM, TWO TIMES A DAY
     Route: 065
     Dates: end: 2019
  8. PREDNISOLONE [Suspect]
     Active Substance: PREDNISOLONE
     Indication: Product used for unknown indication
     Dosage: 1 DOSAGE FORM, PRN
     Route: 065
     Dates: start: 2019
  9. FLUTICASONE [Suspect]
     Active Substance: FLUTICASONE
     Indication: Eczema
     Dosage: 1 DOSAGE FORM (HYDROPHOBIC OINTMENT FACE IF NECESSARY)
     Route: 065
     Dates: start: 20180820, end: 20210918
  10. BETAMETHASONE [Suspect]
     Active Substance: BETAMETHASONE\BETAMETHASONE DIPROPIONATE
     Indication: Eczema
     Dosage: UNK
     Route: 065
     Dates: end: 20210918
  11. DESLORATADINE [Concomitant]
     Active Substance: DESLORATADINE
     Indication: Product used for unknown indication
     Dosage: 5 MILLIGRAM
     Route: 065
  12. TACROLIMUS [Concomitant]
     Active Substance: TACROLIMUS
     Indication: Product used for unknown indication
     Dosage: UNK ONLY SHORT IN FACE
     Route: 065
     Dates: end: 2018
  13. PIMECROLIMUS [Concomitant]
     Active Substance: PIMECROLIMUS
     Indication: Product used for unknown indication
     Dosage: UNK ONLY SHORT IN FACE
     Route: 065
     Dates: end: 2018

REACTIONS (10)
  - Steroid withdrawal syndrome [Recovering/Resolving]
  - Temperature regulation disorder [Unknown]
  - Adrenal disorder [Recovering/Resolving]
  - Dry skin [Recovering/Resolving]
  - Erythema [Recovering/Resolving]
  - Fatigue [Recovering/Resolving]
  - Hypotension [Recovering/Resolving]
  - Poor quality sleep [Recovering/Resolving]
  - Skin swelling [Recovering/Resolving]
  - Skin exfoliation [Recovering/Resolving]
